FAERS Safety Report 24234677 (Version 1)
Quarter: 2024Q3

REPORT INFORMATION
  Report Type: Spontaneous
  Country: US (occurrence: US)
  Receive Date: 20240821
  Receipt Date: 20240821
  Transmission Date: 20241017
  Serious: No
  Sender: MYLAN
  Company Number: US-MYLANLABS-2024M1076899

PATIENT
  Sex: Female
  Weight: 87.54 kg

DRUGS (1)
  1. ATORVASTATIN CALCIUM [Suspect]
     Active Substance: ATORVASTATIN CALCIUM
     Indication: Blood cholesterol
     Dosage: 40 MILLIGRAM, QD (TAKES 1 TABLET AT BED TIME EVERYDAY)
     Route: 048
     Dates: start: 2022

REACTIONS (2)
  - Headache [Not Recovered/Not Resolved]
  - Pyrexia [Unknown]
